FAERS Safety Report 9641062 (Version 4)
Quarter: 2013Q4

REPORT INFORMATION
  Report Type: Report from Study
  Country: CO (occurrence: CO)
  Receive Date: 20131023
  Receipt Date: 20131227
  Transmission Date: 20140711
  Serious: Yes (Hospitalization, Other)
  Sender: FDA-Public Use
  Company Number: CO-ROCHE-1292579

PATIENT
  Age: 53 Year
  Sex: Female
  Weight: 56 kg

DRUGS (6)
  1. XOLAIR [Suspect]
     Indication: ASTHMA
     Route: 058
  2. SALMETEROL [Concomitant]
  3. SINGULAIR [Concomitant]
     Route: 065
  4. SALBUTAMOL [Concomitant]
  5. CALCITRIOL [Concomitant]
  6. FOLIC ACID [Concomitant]

REACTIONS (3)
  - Pneumonia [Recovering/Resolving]
  - Asthmatic crisis [Recovered/Resolved]
  - Haemoglobin decreased [Unknown]
